FAERS Safety Report 14213683 (Version 1)
Quarter: 2017Q4

REPORT INFORMATION
  Report Type: Report from Study
  Country: JP (occurrence: JP)
  Receive Date: 20171122
  Receipt Date: 20171122
  Transmission Date: 20180321
  Serious: Yes (Other)
  Sender: FDA-Public Use
  Company Number: JP-ROCHE-1757509

PATIENT
  Age: 37 Year
  Sex: Male
  Weight: 62 kg

DRUGS (29)
  1. RITUXIMAB. [Suspect]
     Active Substance: RITUXIMAB
     Indication: NEPHROTIC SYNDROME
     Dosage: 10 MG/ML
     Route: 041
     Dates: start: 20151008, end: 20151008
  2. CALONAL [Concomitant]
     Active Substance: ACETAMINOPHEN
     Route: 048
     Dates: start: 20151015, end: 20151015
  3. RITUXIMAB. [Suspect]
     Active Substance: RITUXIMAB
     Dosage: 10 MG/ML
     Route: 041
     Dates: start: 20161027, end: 20161027
  4. CICLOSPORIN [Suspect]
     Active Substance: CYCLOSPORINE
     Indication: NEPHROTIC SYNDROME
     Route: 048
     Dates: start: 20150513, end: 20150624
  5. CICLOSPORIN [Suspect]
     Active Substance: CYCLOSPORINE
     Route: 048
     Dates: start: 20150625, end: 20160722
  6. CICLOSPORIN [Suspect]
     Active Substance: CYCLOSPORINE
     Route: 048
     Dates: start: 20160517, end: 20160712
  7. CALONAL [Concomitant]
     Active Substance: ACETAMINOPHEN
     Indication: PREMEDICATION
     Route: 048
     Dates: start: 20151008, end: 20151008
  8. OLMETEC [Concomitant]
     Active Substance: OLMESARTAN MEDOXOMIL
     Indication: HYPERTENSION
     Route: 048
     Dates: start: 20160517, end: 20160819
  9. ALFACALCIDOL [Concomitant]
     Active Substance: ALFACALCIDOL
     Route: 048
     Dates: start: 20161027
  10. PREDONINE [Concomitant]
     Active Substance: PREDNISOLONE
     Route: 042
  11. PREDONINE [Concomitant]
     Active Substance: PREDNISOLONE
     Dosage: 12.5-30 MG
     Route: 048
     Dates: start: 20151008
  12. POLARAMINE [Concomitant]
     Active Substance: DEXCHLORPHENIRAMINE MALEATE
     Indication: PREMEDICATION
     Route: 048
     Dates: start: 20151008, end: 20151008
  13. POLARAMINE [Concomitant]
     Active Substance: DEXCHLORPHENIRAMINE MALEATE
     Route: 048
     Dates: start: 20151015, end: 20151015
  14. EQUA [Concomitant]
     Active Substance: VILDAGLIPTIN
     Indication: DIABETES MELLITUS
     Route: 048
     Dates: start: 2016
  15. WARFARIN POTASSIUM [Concomitant]
     Active Substance: WARFARIN POTASSIUM
     Dosage: PER DAY
     Route: 065
     Dates: start: 20151031
  16. LANSOPRAZOLE. [Concomitant]
     Active Substance: LANSOPRAZOLE
     Indication: PROPHYLAXIS AGAINST GASTROINTESTINAL ULCER
     Route: 048
     Dates: start: 20160517, end: 20161027
  17. RITUXIMAB. [Suspect]
     Active Substance: RITUXIMAB
     Route: 041
     Dates: start: 20170508, end: 20170508
  18. CALONAL [Concomitant]
     Active Substance: ACETAMINOPHEN
     Route: 048
     Dates: start: 20161027, end: 20161027
  19. CALONAL [Concomitant]
     Active Substance: ACETAMINOPHEN
     Route: 048
     Dates: start: 20160518, end: 20160518
  20. FLUVASTATIN SODIUM. [Concomitant]
     Active Substance: FLUVASTATIN SODIUM
     Indication: HYPERLIPIDAEMIA
     Route: 048
     Dates: start: 20160517, end: 20161027
  21. RISEDRONATE SODIUM. [Concomitant]
     Active Substance: RISEDRONATE SODIUM
     Indication: OSTEOPOROSIS
     Route: 048
     Dates: start: 20160517, end: 20161027
  22. RITUXIMAB. [Suspect]
     Active Substance: RITUXIMAB
     Dosage: 10 MG/ML
     Route: 041
     Dates: start: 20151015, end: 20151015
  23. RITUXIMAB. [Suspect]
     Active Substance: RITUXIMAB
     Dosage: 10 MG/ML
     Route: 041
     Dates: start: 20160518, end: 20160518
  24. POLARAMINE [Concomitant]
     Active Substance: DEXCHLORPHENIRAMINE MALEATE
     Route: 048
     Dates: start: 20160518, end: 20160518
  25. DILAZEP DIHYDROCHLORIDE [Concomitant]
     Active Substance: DILAZEP DIHYDROCHLORIDE
     Indication: NEPHROTIC SYNDROME
     Route: 048
     Dates: end: 20161027
  26. PREDONINE [Concomitant]
     Active Substance: PREDNISOLONE
     Indication: NEPHROTIC SYNDROME
     Route: 048
  27. PREDONINE [Concomitant]
     Active Substance: PREDNISOLONE
     Dosage: 8.5-12.5 MG
     Route: 048
  28. POLARAMINE [Concomitant]
     Active Substance: DEXCHLORPHENIRAMINE MALEATE
     Route: 048
     Dates: start: 20161027, end: 20161027
  29. ZETIA [Concomitant]
     Active Substance: EZETIMIBE
     Indication: HYPERLIPIDAEMIA
     Route: 048
     Dates: start: 20160517, end: 20160610

REACTIONS (4)
  - White blood cell count decreased [Recovered/Resolved]
  - Portal vein thrombosis [Not Recovered/Not Resolved]
  - Lymphorrhoea [Recovering/Resolving]
  - Lymphangioma [Recovering/Resolving]

NARRATIVE: CASE EVENT DATE: 20151018
